FAERS Safety Report 5225356-1 (Version None)
Quarter: 2007Q1

REPORT INFORMATION
  Report Type: 
  Country: None (occurrence: None)
  Receive Date: 20070131
  Receipt Date: 20070124
  Transmission Date: 20070707
  Serious: Yes (Death)
  Sender: FDA-Public Use
  Company Number: US-ROXANE LABORATORIES, INC-2007-DE-00447GD

PATIENT
  Age: 72 Year
  Sex: Female

DRUGS (1)
  1. MORPHINE [Suspect]
     Indication: PROCEDURAL PAIN
     Dosage: 2-MG LOADING DOSE AND 1 MG EVERY 10 MINUTES AS NEEDED, FOR A MAXIMUM OF 6 MG/HOUR

REACTIONS (11)
  - AGITATION [None]
  - CARDIO-RESPIRATORY ARREST [None]
  - CONVULSION [None]
  - DEPRESSED LEVEL OF CONSCIOUSNESS [None]
  - DRUG TOXICITY [None]
  - HYPOTENSION [None]
  - HYPOVENTILATION [None]
  - HYPOXIC ENCEPHALOPATHY [None]
  - MEDICATION ERROR [None]
  - OVERDOSE [None]
  - RESTLESSNESS [None]
